FAERS Safety Report 21681803 (Version 1)
Quarter: 2022Q4

REPORT INFORMATION
  Report Type: Report from Study
  Country: JP (occurrence: None)
  Receive Date: 20221205
  Receipt Date: 20221205
  Transmission Date: 20230113
  Serious: Yes (Death)
  Sender: FDA-Public Use
  Company Number: JP-Merck Healthcare KGaA-9364936

PATIENT
  Age: 82 Year
  Sex: Female

DRUGS (1)
  1. TEPMETKO [Suspect]
     Active Substance: TEPOTINIB HYDROCHLORIDE
     Indication: Non-small cell lung cancer
     Route: 048

REACTIONS (1)
  - Death [Fatal]
